FAERS Safety Report 19501084 (Version 2)
Quarter: 2021Q3

REPORT INFORMATION
  Report Type: Report from Study
  Country: CO (occurrence: CO)
  Receive Date: 20210707
  Receipt Date: 20210817
  Transmission Date: 20211014
  Serious: Yes (Other)
  Sender: FDA-Public Use
  Company Number: NVSC2020CO303059

PATIENT
  Age: 62 Year
  Sex: Female
  Weight: 45 kg

DRUGS (3)
  1. REVOLADE [Suspect]
     Active Substance: ELTROMBOPAG OLAMINE
     Dosage: 50 MG, QD
     Route: 048
  2. REVOLADE [Suspect]
     Active Substance: ELTROMBOPAG OLAMINE
     Indication: IMMUNE THROMBOCYTOPENIA
     Dosage: 25 MG, QD (2 MONTHS AGO (DOES NOT KNOW EXACT DATE))
     Route: 048
     Dates: start: 202008
  3. REVOLADE [Suspect]
     Active Substance: ELTROMBOPAG OLAMINE
     Dosage: 100 MG, QD (TABLET OF 50 MG)
     Route: 048

REACTIONS (9)
  - Pain in extremity [Unknown]
  - Platelet count decreased [Unknown]
  - Platelet count abnormal [Unknown]
  - Poor peripheral circulation [Unknown]
  - Abdominal discomfort [Unknown]
  - Petechiae [Recovering/Resolving]
  - Contusion [Unknown]
  - Discouragement [Unknown]
  - Incorrect dose administered [Unknown]

NARRATIVE: CASE EVENT DATE: 2020
